FAERS Safety Report 6956652-5 (Version None)
Quarter: 2010Q3

REPORT INFORMATION
  Report Type: 
  Country: None (occurrence: None)
  Receive Date: 20100830
  Receipt Date: 20100819
  Transmission Date: 20110219
  Serious: Yes (Other)
  Sender: FDA-Public Use
  Company Number: JP-PFIZER INC-2010104308

PATIENT
  Age: 28 Year
  Sex: Male

DRUGS (3)
  1. CHAMPIX [Suspect]
     Indication: NICOTINE DEPENDENCE
     Dosage: 0.5 MG, 1X/DAY
     Route: 048
     Dates: start: 20090606, end: 20090608
  2. CHAMPIX [Suspect]
     Dosage: 0.5 MG, 2X/DAY
     Dates: start: 20090609, end: 20090612
  3. CHAMPIX [Suspect]
     Dosage: 1 MG, 2X/DAY
     Dates: start: 20090613, end: 20090703

REACTIONS (2)
  - TREATMENT NONCOMPLIANCE [None]
  - UPPER LIMB FRACTURE [None]
